APPROVED DRUG PRODUCT: NALOXONE HYDROCHLORIDE
Active Ingredient: NALOXONE HYDROCHLORIDE
Strength: 1MG/ML
Dosage Form/Route: INJECTABLE;INJECTION
Application: A216624 | Product #002 | TE Code: AP
Applicant: ACCORD HEALTHCARE INC
Approved: Oct 26, 2022 | RLD: No | RS: No | Type: RX